FAERS Safety Report 9753551 (Version 3)
Quarter: 2014Q3

REPORT INFORMATION
  Report Type: Spontaneous
  Country: US (occurrence: US)
  Receive Date: 20131213
  Receipt Date: 20140725
  Transmission Date: 20150326
  Serious: Yes (Hospitalization, Disabling, Other)
  Sender: FDA-Public Use
  Company Number: US-009507513-1010USA00667

PATIENT
  Sex: Female
  Weight: 81.65 kg

DRUGS (5)
  1. FOSAMAX PLUS D [Suspect]
     Active Substance: ALENDRONATE SODIUM\CHOLECALCIFEROL
     Indication: OSTEOPENIA
     Dosage: 70/2800 QW
     Route: 048
     Dates: start: 20071212, end: 20081030
  2. SYNTHROID [Concomitant]
     Active Substance: LEVOTHYROXINE SODIUM
     Indication: HYPOTHYROIDISM
     Dosage: 150 MICROGRAM, QD
     Route: 048
     Dates: start: 2003
  3. FOSAMAX [Suspect]
     Active Substance: ALENDRONATE SODIUM
     Indication: OSTEOPENIA
     Dosage: 70 MG, QW
     Route: 048
     Dates: end: 20081113
  4. FOSAMAX [Suspect]
     Active Substance: ALENDRONATE SODIUM
     Indication: OSTEOPOROSIS
  5. FOSAMAX PLUS D [Suspect]
     Active Substance: ALENDRONATE SODIUM\CHOLECALCIFEROL
     Indication: OSTEOPOROSIS

REACTIONS (65)
  - Sleep apnoea syndrome [Unknown]
  - Cough [Not Recovered/Not Resolved]
  - Dry eye [Unknown]
  - Iliotibial band syndrome [Unknown]
  - Weight decreased [Unknown]
  - Angina pectoris [Unknown]
  - Temperature intolerance [Unknown]
  - Epistaxis [Unknown]
  - Hypotension [Recovering/Resolving]
  - Back pain [Unknown]
  - Constipation [Unknown]
  - Depression [Unknown]
  - Hypercholesterolaemia [Unknown]
  - Fatigue [Not Recovered/Not Resolved]
  - Pain [Not Recovered/Not Resolved]
  - Rhinorrhoea [Not Recovered/Not Resolved]
  - Anaemia postoperative [Recovering/Resolving]
  - Incisional drainage [Unknown]
  - Tendonitis [Unknown]
  - Glaucoma [Unknown]
  - Ecchymosis [Unknown]
  - Adverse drug reaction [Unknown]
  - Hypermetropia [Unknown]
  - Device breakage [Unknown]
  - Palpitations [Unknown]
  - Tinnitus [Unknown]
  - Cystitis escherichia [Unknown]
  - Muscle spasms [Unknown]
  - Vertigo [Unknown]
  - Internal fixation of fracture [Unknown]
  - Wound drainage [Recovered/Resolved]
  - Anaemia [Recovering/Resolving]
  - Gingival bleeding [Unknown]
  - Vision blurred [Unknown]
  - Haematochezia [Unknown]
  - Jaundice [Unknown]
  - Rash pustular [Recovered/Resolved]
  - Hypocalcaemia [Unknown]
  - Intramedullary rod insertion [Unknown]
  - Haematoma [Unknown]
  - Low turnover osteopathy [Unknown]
  - Respiratory tract congestion [Not Recovered/Not Resolved]
  - Rotator cuff syndrome [Unknown]
  - Exercise tolerance decreased [Unknown]
  - Muscular weakness [Unknown]
  - Smear cervix abnormal [Unknown]
  - Haemoptysis [Unknown]
  - Device breakage [Unknown]
  - Dysphagia [Unknown]
  - Muscle spasms [Unknown]
  - Femur fracture [Recovered/Resolved]
  - Device failure [Unknown]
  - Muscle tightness [Unknown]
  - Melanocytic naevus [Unknown]
  - Cough [Unknown]
  - Haematemesis [Unknown]
  - Dysuria [Unknown]
  - Gastrooesophageal reflux disease [Unknown]
  - Pain in jaw [Unknown]
  - Headache [Not Recovered/Not Resolved]
  - Joint irrigation [Unknown]
  - Loop electrosurgical excision procedure [Unknown]
  - Cataract [Unknown]
  - Pain in extremity [Not Recovered/Not Resolved]
  - Abdominal pain [Unknown]

NARRATIVE: CASE EVENT DATE: 19990818
